FAERS Safety Report 13836085 (Version 1)
Quarter: 2017Q3

REPORT INFORMATION
  Report Type: Spontaneous
  Country: IN (occurrence: IN)
  Receive Date: 20170804
  Receipt Date: 20170804
  Transmission Date: 20171127
  Serious: Yes (Other)
  Sender: FDA-Public Use
  Company Number: IN-APOPHARMA USA, INC.-2017AP016159

PATIENT
  Age: 30 Year
  Sex: Female

DRUGS (3)
  1. BORTEZOMIB [Concomitant]
     Active Substance: BORTEZOMIB
     Indication: CHEMOTHERAPY
     Dosage: 100 MG/M2, OTHER
     Route: 065
     Dates: end: 201504
  2. ALKERAN [Suspect]
     Active Substance: MELPHALAN
     Indication: SURGICAL PRECONDITIONING
     Dosage: 100 MG/M2, UNKNOWN
     Route: 065
  3. BORTEZOMIB [Concomitant]
     Active Substance: BORTEZOMIB
     Indication: MYELOMA CAST NEPHROPATHY
     Dosage: 100 MG/M2, OTHER
     Route: 065
     Dates: end: 201405

REACTIONS (2)
  - Febrile neutropenia [Recovered/Resolved]
  - Gastrointestinal toxicity [Recovered/Resolved]
